FAERS Safety Report 4664590-6 (Version None)
Quarter: 2005Q2

REPORT INFORMATION
  Report Type: 
  Country: None (occurrence: None)
  Receive Date: 20050518
  Receipt Date: 20050511
  Transmission Date: 20051028
  Serious: Yes (Death)
  Sender: FDA-Public Use
  Company Number: 2005-UK-00752UK

PATIENT
  Sex: Male

DRUGS (6)
  1. AMOXICILLIN [Suspect]
     Route: 042
  2. SALBUTAMOL [Suspect]
     Route: 055
  3. PARACETAMOL [Suspect]
     Route: 065
  4. ATROVENT [Suspect]
     Route: 055
  5. CLARITHROMYCIN [Suspect]
     Route: 065
  6. CO-DANTHRAMER [Suspect]
     Route: 065

REACTIONS (2)
  - BRONCHIAL CARCINOMA [None]
  - PNEUMONIA [None]
